FAERS Safety Report 4553829-3 (Version None)
Quarter: 2005Q1

REPORT INFORMATION
  Report Type: 
  Country: None (occurrence: None)
  Receive Date: 20050110
  Receipt Date: 20050110
  Transmission Date: 20050727
  Serious: Yes (Death)
  Sender: FDA-Public Use
  Company Number: None

PATIENT
  Age: 40 Year
  Sex: Female
  Weight: 49.8957 kg

DRUGS (3)
  1. IMITREX [Suspect]
     Indication: MIGRAINE
     Dosage: DOSE = NI 2 DOSES WERE TAKEN
     Dates: start: 19950101
  2. BIRTH CONTROL PILLS [Concomitant]
  3. THYROID TAB [Concomitant]

REACTIONS (3)
  - CHEST PAIN [None]
  - DYSSTASIA [None]
  - LOSS OF CONSCIOUSNESS [None]
